FAERS Safety Report 9710494 (Version 1)
Quarter: 2013Q4

REPORT INFORMATION
  Report Type: Spontaneous
  Country: US (occurrence: US)
  Receive Date: 20131126
  Receipt Date: 20131126
  Transmission Date: 20140711
  Serious: No
  Sender: FDA-Public Use
  Company Number: US-BRISTOL-MYERS SQUIBB COMPANY-18832527

PATIENT
  Age: 69 Year
  Sex: Female
  Weight: 108.39 kg

DRUGS (1)
  1. BYETTA [Suspect]
     Dates: start: 2012

REACTIONS (2)
  - Blood glucose fluctuation [Unknown]
  - Weight decreased [Unknown]
